FAERS Safety Report 13511549 (Version 1)
Quarter: 2017Q2

REPORT INFORMATION
  Report Type: Spontaneous
  Country: CA (occurrence: CA)
  Receive Date: 20170504
  Receipt Date: 20170504
  Transmission Date: 20170830
  Serious: Yes (Hospitalization, Disabling, Other)
  Sender: FDA-Public Use
  Company Number: CA-TEVA-765219ACC

PATIENT
  Age: 58 Year
  Sex: Female
  Weight: 90.8 kg

DRUGS (6)
  1. HYDROCHLOROTHIAZIDE. [Concomitant]
     Active Substance: HYDROCHLOROTHIAZIDE
  2. CARBAMAZEPINE CR [Concomitant]
  3. WARFARIN [Suspect]
     Active Substance: WARFARIN
     Indication: THROMBOSIS
     Route: 048
  4. CRESTOR [Concomitant]
     Active Substance: ROSUVASTATIN CALCIUM
  5. HYDROXYZINE [Concomitant]
     Active Substance: HYDROXYZINE HYDROCHLORIDE
  6. OMEPRAZOLE. [Concomitant]
     Active Substance: OMEPRAZOLE

REACTIONS (22)
  - Abdominal pain [Not Recovered/Not Resolved]
  - Oesophageal ulcer [Not Recovered/Not Resolved]
  - Pruritus [Not Recovered/Not Resolved]
  - Rash generalised [Not Recovered/Not Resolved]
  - Gastritis [Not Recovered/Not Resolved]
  - Rash papular [Not Recovered/Not Resolved]
  - Epistaxis [Not Recovered/Not Resolved]
  - Headache [Not Recovered/Not Resolved]
  - Hypophagia [Not Recovered/Not Resolved]
  - Rash erythematous [Not Recovered/Not Resolved]
  - Arthritis [Not Recovered/Not Resolved]
  - Nausea [Not Recovered/Not Resolved]
  - Dizziness [Not Recovered/Not Resolved]
  - Dyspnoea [Not Recovered/Not Resolved]
  - Joint stiffness [Not Recovered/Not Resolved]
  - Rash pruritic [Not Recovered/Not Resolved]
  - Syncope [Not Recovered/Not Resolved]
  - Vomiting [Not Recovered/Not Resolved]
  - Arthralgia [Not Recovered/Not Resolved]
  - Haematochezia [Not Recovered/Not Resolved]
  - Scar [Not Recovered/Not Resolved]
  - Vaginal haemorrhage [Not Recovered/Not Resolved]
